FAERS Safety Report 8829929 (Version 3)
Quarter: 2012Q4

REPORT INFORMATION
  Report Type: 
  Country: CL (occurrence: CL)
  Receive Date: 20121008
  Receipt Date: 20121122
  Transmission Date: 20130627
  Serious: Yes (Other)
  Sender: FDA-Public Use
  Company Number: PHHY2012CL088156

PATIENT
  Age: 43 None
  Sex: Female
  Weight: 58 kg

DRUGS (3)
  1. GILENYA [Suspect]
     Indication: RELAPSING-REMITTING MULTIPLE SCLEROSIS
     Dosage: 0.5 mg, per day
     Route: 048
     Dates: start: 20120608
  2. CLONAZEPAM [Concomitant]
     Indication: ANXIETY
     Dosage: 0.5 mg, daily
     Route: 048
     Dates: start: 201204
  3. VENLAFAXINE [Concomitant]
     Indication: DEPRESSION
     Dosage: 75 mg, daily
     Route: 048
     Dates: start: 201205

REACTIONS (4)
  - Optic neuritis [Unknown]
  - Lymphopenia [Unknown]
  - Anaemia [Not Recovered/Not Resolved]
  - Diarrhoea [Recovered/Resolved]
